FAERS Safety Report 4676588-2 (Version None)
Quarter: 2005Q2

REPORT INFORMATION
  Report Type: 
  Country: None (occurrence: None)
  Receive Date: 20050527
  Receipt Date: 20050222
  Transmission Date: 20051028
  Serious: Yes (Hospitalization)
  Sender: FDA-Public Use
  Company Number: FR-ROCHE-396214

PATIENT
  Age: 51 Year
  Sex: Male

DRUGS (8)
  1. RIVOTRIL [Suspect]
     Indication: PAIN
     Route: 048
     Dates: start: 20040301, end: 20040613
  2. NEO-MERCAZOLE TAB [Suspect]
     Indication: DRUG USE FOR UNKNOWN INDICATION
     Route: 048
     Dates: start: 20020501, end: 20040615
  3. SULFASALAZINE [Suspect]
     Indication: DRUG USE FOR UNKNOWN INDICATION
     Route: 048
     Dates: start: 20040604, end: 20040612
  4. SULFASALAZINE [Suspect]
     Route: 048
     Dates: start: 20040528, end: 20040603
  5. CORTANCYL [Suspect]
     Indication: DRUG USE FOR UNKNOWN INDICATION
     Route: 048
     Dates: start: 20020901, end: 20040613
  6. VITAMIN D3 [Concomitant]
     Dates: start: 20040301
  7. CALCIUM GLUCONATE [Concomitant]
     Dates: start: 20040301
  8. OPHTIM [Concomitant]
     Dates: start: 20020601

REACTIONS (1)
  - TOXIC EPIDERMAL NECROLYSIS [None]
